FAERS Safety Report 8458897-4 (Version None)
Quarter: 2012Q2

REPORT INFORMATION
  Report Type: 
  Country: None (occurrence: None)
  Receive Date: 20120622
  Receipt Date: 20120613
  Transmission Date: 20120825
  Serious: Yes (Hospitalization, Other)
  Sender: FDA-Public Use
  Company Number: US-BAYER-2011-109994

PATIENT
  Age: 31 Year
  Sex: Female
  Weight: 117.91 kg

DRUGS (29)
  1. DROSPIRENONE AND ETHINYL ESTRADIOL [Suspect]
     Indication: PREMENSTRUAL SYNDROME
  2. MULTI-VITAMINS [Concomitant]
     Dosage: UNK
     Dates: start: 20090727
  3. DROSPIRENONE AND ETHINYL ESTRADIOL [Suspect]
  4. KEFLEX [Concomitant]
     Dosage: 500 MG, BID
     Dates: start: 20090724
  5. ALBUTEROL [Concomitant]
     Indication: ASTHMA
     Dosage: UNK
     Dates: start: 20090727
  6. CHANTIX [Concomitant]
     Dosage: 0.5 MG, DAILY
     Route: 048
     Dates: start: 20090922
  7. YAZ [Suspect]
     Indication: ACNE
     Dosage: UNK
     Dates: start: 20090731, end: 20091101
  8. BYSTOLIC [Concomitant]
     Dosage: 10 MG, QD
     Dates: start: 20090727
  9. TRANDOLAPRIL [Concomitant]
     Dosage: 2 MG, UNK
     Dates: start: 20091114
  10. PROMETHAZINE HYDROCHLORIDE [Concomitant]
     Dosage: 25 MG, EVERY 4 TO 6 HRS PRN
     Route: 054
  11. YAZ [Suspect]
     Indication: PREMENSTRUAL SYNDROME
  12. ACETAMINOPHEN [Concomitant]
     Indication: HEADACHE
     Dosage: 2 TABLET
  13. DOXYCYCLINE [Concomitant]
     Dosage: 100 MG, BID
     Dates: start: 20090727
  14. XALATAN [Concomitant]
     Dosage: UNK
     Dates: start: 20090727
  15. COMPAZINE [Concomitant]
     Dosage: UNK
     Dates: start: 20091017
  16. COLACE [Concomitant]
     Dosage: 1 TABLET DAILY
     Dates: start: 20091126
  17. DROSPIRENONE AND ETHINYL ESTRADIOL [Suspect]
     Indication: ACNE
     Dosage: UNK
     Route: 048
     Dates: start: 20090731, end: 20091101
  18. ATENOLOL [Concomitant]
     Dosage: 50 MG, DAILY
     Dates: start: 20091017
  19. MORPHINE [Concomitant]
     Dosage: 120 MG, BID
     Dates: start: 20091126
  20. PERCOCET [Concomitant]
     Dosage: 5/325, PRN
     Dates: start: 20091126
  21. CHANTIX [Concomitant]
     Dosage: 0.5 MG DAILY
     Route: 048
     Dates: start: 20090727
  22. REGLAN [Concomitant]
     Indication: NAUSEA
     Dosage: 10 MG, 1 TABLET, Q6WK PRN
     Dates: start: 20090727
  23. ESOMEPRAZOLE [Concomitant]
     Dosage: 40 MG, QD
     Route: 048
     Dates: start: 20091122
  24. LEVAQUIN [Concomitant]
     Dosage: 750 MG, UNK
     Dates: start: 20090924
  25. YAZ [Suspect]
  26. LORTAB [Concomitant]
     Dosage: 5/500 TABLET, Q6WK
     Dates: start: 20090724
  27. MULTI-VITAMINS [Concomitant]
  28. LEVAQUIN [Concomitant]
     Dosage: 750 MG, UNK
     Dates: start: 20090831
  29. TRANDOLAPRIL [Concomitant]
     Dosage: 2 MG, UNK
     Dates: start: 20091013

REACTIONS (12)
  - THROMBOTIC STROKE [None]
  - DEEP VEIN THROMBOSIS [None]
  - TRANSVERSE SINUS THROMBOSIS [None]
  - PULMONARY EMBOLISM [None]
  - ASTHENIA [None]
  - ANXIETY [None]
  - INJURY [None]
  - PAIN [None]
  - EMOTIONAL DISTRESS [None]
  - GENERAL PHYSICAL HEALTH DETERIORATION [None]
  - HAEMOPTYSIS [None]
  - ANHEDONIA [None]
